FAERS Safety Report 6070061-5 (Version None)
Quarter: 2009Q1

REPORT INFORMATION
  Report Type: 
  Country: None (occurrence: None)
  Receive Date: 20090209
  Receipt Date: 20090203
  Transmission Date: 20090719
  Serious: Yes (Death, Hospitalization, Other)
  Sender: FDA-Public Use
  Company Number: PHHY2008JP32031

PATIENT
  Sex: Male
  Weight: 67 kg

DRUGS (7)
  1. VOLTAREN [Suspect]
     Indication: BACK PAIN
     Dosage: 25 MG, TID
     Route: 048
     Dates: start: 20070424, end: 20070427
  2. ASPIRIN [Interacting]
     Indication: ANGINA PECTORIS
     Dosage: 100MG PER DAY
     Route: 048
     Dates: start: 20061222, end: 20070427
  3. PLAVIX [Interacting]
     Indication: ANGINA PECTORIS
     Dosage: 75MG PER DAY
     Route: 048
     Dates: start: 20070115, end: 20070427
  4. LASIX [Concomitant]
     Indication: CARDIAC FAILURE CONGESTIVE
     Dosage: 40MG
     Route: 048
     Dates: start: 20061222, end: 20070427
  5. ALDACTONE [Concomitant]
     Indication: CARDIAC FAILURE CONGESTIVE
     Dosage: 25MG
     Route: 048
     Dates: start: 20061222, end: 20070427
  6. BLOPRESS [Concomitant]
     Indication: HYPERTENSION
     Dosage: 8MG
     Route: 048
     Dates: start: 20061222, end: 20070427
  7. LACTULOSE [Concomitant]
     Indication: HEPATIC ENCEPHALOPATHY
     Dosage: 6G
     Route: 048
     Dates: start: 20061222, end: 20070429

REACTIONS (23)
  - ALTERED STATE OF CONSCIOUSNESS [None]
  - ANURIA [None]
  - ASPIRATION [None]
  - BRAIN STEM SYNDROME [None]
  - CEREBRAL INFARCTION [None]
  - CHEYNE-STOKES RESPIRATION [None]
  - CONTINUOUS HAEMODIAFILTRATION [None]
  - DRUG INTERACTION [None]
  - DYSKINESIA [None]
  - ENDOTRACHEAL INTUBATION [None]
  - EPISTAXIS [None]
  - EXTUBATION [None]
  - HEPATIC CONGESTION [None]
  - HEPATIC ENCEPHALOPATHY [None]
  - HEPATIC FAILURE [None]
  - INFECTION [None]
  - MULTI-ORGAN FAILURE [None]
  - MYOCARDIAL INFARCTION [None]
  - PNEUMONIA ASPIRATION [None]
  - PYREXIA [None]
  - RENAL FAILURE ACUTE [None]
  - RESPIRATORY DISTRESS [None]
  - UNRESPONSIVE TO STIMULI [None]
